FAERS Safety Report 19196876 (Version 5)
Quarter: 2021Q3

REPORT INFORMATION
  Report Type: Report from Study
  Country: US (occurrence: US)
  Receive Date: 20210429
  Receipt Date: 20210817
  Transmission Date: 20211014
  Serious: Yes (Life-Threatening, Hospitalization, Other)
  Sender: FDA-Public Use
  Company Number: NVSC2021US088919

PATIENT
  Age: 84 Year
  Sex: Male

DRUGS (2)
  1. ENTRESTO [Suspect]
     Active Substance: SACUBITRIL\VALSARTAN
     Dosage: UNK
     Route: 065
  2. ENTRESTO [Suspect]
     Active Substance: SACUBITRIL\VALSARTAN
     Indication: CARDIAC FAILURE
     Dosage: 200 MG (97/103 MG), BID
     Route: 048
     Dates: start: 2019

REACTIONS (17)
  - Heart rate increased [Unknown]
  - Fall [Unknown]
  - Head injury [Unknown]
  - Memory impairment [Unknown]
  - Feeling abnormal [Unknown]
  - Balance disorder [Unknown]
  - Illness [Unknown]
  - Product dose omission issue [Unknown]
  - Diabetes mellitus [Unknown]
  - Blindness [Unknown]
  - Arrhythmia [Unknown]
  - Rib fracture [Unknown]
  - Hypoacusis [Unknown]
  - Near death experience [Unknown]
  - Cardiac failure [Unknown]
  - Visual impairment [Unknown]
  - Tremor [Unknown]

NARRATIVE: CASE EVENT DATE: 202001
